FAERS Safety Report 22367186 (Version 1)
Quarter: 2023Q2

REPORT INFORMATION
  Report Type: Spontaneous
  Country: FR (occurrence: FR)
  Receive Date: 20230525
  Receipt Date: 20230525
  Transmission Date: 20230722
  Serious: Yes (Other)
  Sender: FDA-Public Use
  Company Number: None

PATIENT
  Age: 38 Year
  Sex: Female
  Weight: 60 kg

DRUGS (2)
  1. SILDENAFIL [Suspect]
     Active Substance: SILDENAFIL
     Indication: Weight decreased
     Dosage: 1 DOSAGE FORMS DAILY; 1 CAPSULE OF TREX CAPS PER DAY,
     Route: 065
     Dates: start: 20230324, end: 20230411
  2. SIBUTRAMINE HYDROCHLORIDE MONOHYDRATE [Suspect]
     Active Substance: SIBUTRAMINE HYDROCHLORIDE
     Indication: Weight decreased
     Dosage: 1 DOSAGE FORMS DAILY; 1 CAPSULE OF TREX CAPS PER DAY,
     Route: 065
     Dates: start: 20230324, end: 20230411

REACTIONS (8)
  - Abortion spontaneous [Recovered/Resolved with Sequelae]
  - Nausea [Recovered/Resolved]
  - Suspected counterfeit product [Unknown]
  - Sleep disorder [Recovered/Resolved]
  - Palpitations [Recovered/Resolved]
  - Hot flush [Recovered/Resolved]
  - Hyperhidrosis [Recovered/Resolved]
  - Headache [Recovered/Resolved]

NARRATIVE: CASE EVENT DATE: 20230301
